FAERS Safety Report 9516852 (Version 1)
Quarter: 2013Q1

REPORT INFORMATION
  Report Type: Spontaneous
  Country: US (occurrence: None)
  Receive Date: 20130305
  Receipt Date: 20130305
  Transmission Date: 20140127
  Serious: Yes (Hospitalization, Other)
  Sender: FDA-Public Use
  Company Number: 163-21880-12011248

PATIENT
  Sex: Female

DRUGS (2)
  1. REVLIMID [Suspect]
     Indication: PLASMA CELL MYELOMA
     Route: 048
     Dates: start: 201111
  2. FLUID (BARIUM SULFATE) [Concomitant]

REACTIONS (5)
  - Osteolysis [None]
  - Neck pain [None]
  - Chest pain [None]
  - Back pain [None]
  - Compression fracture [None]
